FAERS Safety Report 7314502-1 (Version None)
Quarter: 2011Q1

REPORT INFORMATION
  Report Type: 
  Country: None (occurrence: None)
  Receive Date: 20110225
  Receipt Date: 20100913
  Transmission Date: 20110831
  Serious: No
  Sender: FDA-Public Use
  Company Number: US-MYLANLABS-2010S1016936

PATIENT
  Age: 44 Year
  Sex: Male

DRUGS (6)
  1. AMNESTEEM [Suspect]
     Indication: ACNE CYSTIC
     Route: 048
     Dates: start: 20100401, end: 20100801
  2. TIZANIDINE [Concomitant]
  3. KADIAN [Concomitant]
  4. SIMVASTATIN [Concomitant]
  5. ANTI-ASTHMATICS [Concomitant]
  6. LYRICA [Concomitant]

REACTIONS (3)
  - GAIT DISTURBANCE [None]
  - HYPOAESTHESIA [None]
  - HEADACHE [None]
